FAERS Safety Report 7986314-7 (Version None)
Quarter: 2011Q4

REPORT INFORMATION
  Report Type: 
  Country: None (occurrence: None)
  Receive Date: 20111216
  Receipt Date: 20110720
  Transmission Date: 20120403
  Serious: No
  Sender: FDA-Public Use
  Company Number: US-BRISTOL-MYERS SQUIBB COMPANY-15876402

PATIENT
  Age: 57 Year
  Sex: Female

DRUGS (4)
  1. COUMADIN [Suspect]
  2. CYMBALTA [Concomitant]
     Route: 048
     Dates: start: 20090129
  3. ABILIFY [Suspect]
     Indication: DEPRESSION
     Dosage: STARTED AS 2MG NOV10
     Route: 048
     Dates: start: 20090129
  4. OXYCONTIN [Concomitant]
     Indication: BACK PAIN
     Route: 048

REACTIONS (9)
  - GOUT [None]
  - FAECAL INCONTINENCE [None]
  - URINARY INCONTINENCE [None]
  - VISUAL IMPAIRMENT [None]
  - GAIT DISTURBANCE [None]
  - DRUG DISPENSING ERROR [None]
  - HYPOAESTHESIA [None]
  - HYPOTENSION [None]
  - LIBIDO DECREASED [None]
